FAERS Safety Report 15346777 (Version 1)
Quarter: 2018Q3

REPORT INFORMATION
  Report Type: Spontaneous
  Country: US (occurrence: US)
  Receive Date: 20180828
  Receipt Date: 20180828
  Transmission Date: 20181010
  Serious: Yes (Hospitalization)
  Sender: FDA-Public Use
  Company Number: None

PATIENT
  Age: 23 Year
  Sex: Male
  Weight: 104.33 kg

DRUGS (2)
  1. PALIPERIDONE. [Suspect]
     Active Substance: PALIPERIDONE
     Indication: SCHIZOAFFECTIVE DISORDER
     Route: 030
     Dates: start: 20180405, end: 20180405
  2. PALIPERIDONE. [Suspect]
     Active Substance: PALIPERIDONE
     Indication: SCHIZOPHRENIA
     Route: 030
     Dates: start: 20180405, end: 20180405

REACTIONS (7)
  - Suicidal ideation [None]
  - Grandiosity [None]
  - Therapeutic response shortened [None]
  - Thinking abnormal [None]
  - Akathisia [None]
  - Treatment failure [None]
  - Hallucination, auditory [None]

NARRATIVE: CASE EVENT DATE: 20180510
